FAERS Safety Report 6904293-8 (Version None)
Quarter: 2010Q3

REPORT INFORMATION
  Report Type: 
  Country: None (occurrence: None)
  Receive Date: 20100804
  Receipt Date: 20090417
  Transmission Date: 20110219
  Serious: No
  Sender: FDA-Public Use
  Company Number: US-PFIZER INC-2009186019

PATIENT
  Sex: Female
  Weight: 72.562 kg

DRUGS (9)
  1. LYRICA [Suspect]
     Indication: FIBROMYALGIA
     Dosage: 50 MG, 1X/DAY
     Dates: start: 20081001, end: 20090301
  2. LYRICA [Suspect]
     Indication: MYALGIA
  3. ZOCOR [Concomitant]
     Indication: BLOOD CHOLESTEROL INCREASED
     Dosage: UNK
  4. PROPRANOLOL [Concomitant]
     Indication: CEREBROVASCULAR ACCIDENT
     Dosage: UNK
  5. HYDROXYCHLOROQUINE [Concomitant]
     Indication: ARTHRITIS
     Dosage: UNK
  6. PLAVIX [Concomitant]
     Indication: CEREBROVASCULAR ACCIDENT
     Dosage: UNK
  7. PREDNISONE [Concomitant]
     Dosage: UNK
  8. HYDROCODONE [Concomitant]
     Indication: ARTHRITIS
     Dosage: UNK
  9. PREVACID [Concomitant]
     Dosage: UNK

REACTIONS (8)
  - HEAT RASH [None]
  - INFLAMMATION [None]
  - INSOMNIA [None]
  - JOINT SWELLING [None]
  - OEDEMA PERIPHERAL [None]
  - PAIN [None]
  - PRURITUS [None]
  - RASH [None]
